FAERS Safety Report 10706358 (Version 1)
Quarter: 2015Q1

REPORT INFORMATION
  Report Type: Spontaneous
  Country: JP (occurrence: None)
  Receive Date: 20150109
  Receipt Date: 20150109
  Transmission Date: 20150721
  Serious: Yes (Other)
  Sender: FDA-Public Use
  Company Number: SP08703

PATIENT
  Age: 78 Year
  Sex: Female

DRUGS (8)
  1. MOVIPREP [Suspect]
     Active Substance: ASCORBIC ACID\POLYETHYLENE GLYCOL 3350\POTASSIUM CHLORIDE\SODIUM ASCORBATE\SODIUM CHLORIDE\SODIUM SULFATE
     Indication: BOWEL PREPARATION
     Route: 048
     Dates: start: 20141111, end: 20141111
  2. TAKEPRON [Concomitant]
     Active Substance: LANSOPRAZOLE
  3. WARFARIN POTASSIUM [Concomitant]
     Active Substance: WARFARIN POTASSIUM
  4. BROTIZOLAM [Concomitant]
     Active Substance: BROTIZOLAM
  5. SOTACOR [Concomitant]
     Active Substance: SOTALOL HYDROCHLORIDE
  6. BAYASPIRIN [Concomitant]
     Active Substance: ASPIRIN
  7. THYRADIN [Concomitant]
     Active Substance: LEVOTHYROXINE
  8. EDIROL [Concomitant]
     Active Substance: ELDECALCITOL

REACTIONS (4)
  - Hypovolaemia [None]
  - Tachycardia [None]
  - Atrial fibrillation [None]
  - Arrhythmia [None]

NARRATIVE: CASE EVENT DATE: 20141111
